FAERS Safety Report 25517361 (Version 1)
Quarter: 2025Q3

REPORT INFORMATION
  Report Type: Spontaneous
  Country: US (occurrence: US)
  Receive Date: 20250704
  Receipt Date: 20250704
  Transmission Date: 20251021
  Serious: No
  Sender: RADIUS PHARM
  Company Number: US-RADIUS HEALTH INC.-US-RADIUS-25047275

PATIENT
  Sex: Male

DRUGS (2)
  1. TYMLOS [Suspect]
     Active Substance: ABALOPARATIDE
     Indication: Bone disorder
     Dosage: 80 MICROGRAM, QD
     Route: 058
     Dates: start: 202501
  2. KEVZARA [Concomitant]
     Active Substance: SARILUMAB
     Indication: Ankylosing spondylitis

REACTIONS (1)
  - Haemorrhage [Unknown]
